FAERS Safety Report 8729471 (Version 2)
Quarter: 2012Q4

REPORT INFORMATION
  Report Type: 
  Country: JP (occurrence: JP)
  Receive Date: 20120817
  Receipt Date: 20120903
  Transmission Date: 20130627
  Serious: Yes (Other)
  Sender: FDA-Public Use
  Company Number: JP-PFIZER INC-2012197449

PATIENT
  Sex: Female

DRUGS (2)
  1. ANGE-28 [Suspect]
     Indication: CONTRACEPTION
     Dosage: 1 DF, 1x/day
     Route: 048
     Dates: start: 20120529, end: 20120803
  2. BETAHISTINE MESILATE [Concomitant]

REACTIONS (1)
  - Rhabdomyolysis [Recovered/Resolved]
